FAERS Safety Report 10018226 (Version 1)
Quarter: 2014Q1

REPORT INFORMATION
  Report Type: Spontaneous
  Country: US (occurrence: US)
  Receive Date: 20140318
  Receipt Date: 20140318
  Transmission Date: 20141002
  Serious: No
  Sender: FDA-Public Use
  Company Number: US-BRISTOL-MYERS SQUIBB COMPANY-19426139

PATIENT
  Sex: Male

DRUGS (2)
  1. CETUXIMAB [Suspect]
     Dates: start: 20130918
  2. TURMERIC [Interacting]

REACTIONS (1)
  - Drug interaction [Unknown]
